FAERS Safety Report 9684684 (Version 2)
Quarter: 2013Q4

REPORT INFORMATION
  Report Type: Spontaneous
  Country: JP (occurrence: JP)
  Receive Date: 20131112
  Receipt Date: 20131112
  Transmission Date: 20140711
  Serious: Yes (Hospitalization)
  Sender: FDA-Public Use
  Company Number: JP-PFIZER INC-2013303856

PATIENT
  Age: 72 Year
  Sex: Male

DRUGS (1)
  1. CHAMPIX [Suspect]
     Indication: SMOKING CESSATION THERAPY
     Dosage: 2 MG, SINGLE
     Route: 048
     Dates: start: 20130921, end: 20130921

REACTIONS (7)
  - Road traffic accident [Recovered/Resolved]
  - Loss of consciousness [Recovered/Resolved]
  - Feeling abnormal [Recovered/Resolved]
  - Dizziness [Recovered/Resolved]
  - Drooling [Recovered/Resolved]
  - Nausea [Unknown]
  - Vomiting [Unknown]
